FAERS Safety Report 16006073 (Version 1)
Quarter: 2019Q1

REPORT INFORMATION
  Report Type: Spontaneous
  Country: US (occurrence: US)
  Receive Date: 20190226
  Receipt Date: 20190226
  Transmission Date: 20190418
  Serious: Yes (Life-Threatening)
  Sender: FDA-Public Use
  Company Number: US-ORPHAN EUROPE-2063207

PATIENT
  Age: 54 Year
  Sex: Male

DRUGS (1)
  1. CARBAGLU [Suspect]
     Active Substance: CARGLUMIC ACID
     Indication: UREA CYCLE DISORDER
     Dates: start: 201811

REACTIONS (3)
  - Product dose omission [Unknown]
  - Dysgeusia [Unknown]
  - Drug ineffective [Unknown]
